FAERS Safety Report 23158026 (Version 8)
Quarter: 2024Q2

REPORT INFORMATION
  Report Type: Spontaneous
  Country: DE (occurrence: DE)
  Receive Date: 20231108
  Receipt Date: 20240524
  Transmission Date: 20240715
  Serious: Yes (Life-Threatening, Hospitalization, Disabling, Other)
  Sender: FDA-Public Use
  Company Number: None

PATIENT
  Age: 10 Year
  Sex: Female
  Weight: 58 kg

DRUGS (6)
  1. RISPERIDONE [Suspect]
     Active Substance: RISPERIDONE
     Indication: Product used for unknown indication
     Route: 065
  2. LISDEXAMFETAMINE DIMESYLATE [Suspect]
     Active Substance: LISDEXAMFETAMINE DIMESYLATE
     Indication: Product used for unknown indication
     Route: 065
  3. GARDASIL 9 [Suspect]
     Active Substance: HUMAN PAPILLOMAVIRUS TYPE 11 L1 CAPSID PROTEIN ANTIGEN\HUMAN PAPILLOMAVIRUS TYPE 16 L1 CAPSID PROTEI
     Indication: Immunisation
     Route: 030
     Dates: start: 20181213
  4. GARDASIL 9 [Suspect]
     Active Substance: HUMAN PAPILLOMAVIRUS TYPE 11 L1 CAPSID PROTEIN ANTIGEN\HUMAN PAPILLOMAVIRUS TYPE 16 L1 CAPSID PROTEI
     Indication: Prophylaxis
  5. METHYLPHENIDATE HYDROCHLORIDE [Suspect]
     Active Substance: METHYLPHENIDATE HYDROCHLORIDE
     Indication: Product used for unknown indication
     Route: 065
  6. METHYLPHENIDATE HYDROCHLORIDE [Suspect]
     Active Substance: METHYLPHENIDATE HYDROCHLORIDE
     Indication: Product used for unknown indication
     Route: 065

REACTIONS (51)
  - Removal of foreign body from eye [Unknown]
  - Cerebral atrophy [Unknown]
  - Syncope [Unknown]
  - Neutrophilia [Unknown]
  - Epstein-Barr virus infection [Unknown]
  - Personality change [Not Recovered/Not Resolved]
  - Gastritis erosive [Unknown]
  - Disorientation [Unknown]
  - Adverse drug reaction [Unknown]
  - Cardiovascular disorder [Unknown]
  - Alanine aminotransferase increased [Unknown]
  - Blood glucose abnormal [Unknown]
  - Amenorrhoea [Unknown]
  - Intellectual disability [Recovered/Resolved with Sequelae]
  - Foot deformity [Unknown]
  - Leukopenia [Unknown]
  - Bacterial disease carrier [Unknown]
  - Organic brain syndrome [Recovered/Resolved with Sequelae]
  - Neurodegenerative disorder [Unknown]
  - Metabolic disorder [Unknown]
  - Urinary incontinence [Unknown]
  - Anti-transglutaminase antibody increased [Unknown]
  - Weight increased [Unknown]
  - Pica [Not Recovered/Not Resolved]
  - Vitamin D decreased [Unknown]
  - Depression [Unknown]
  - Sensitisation [Unknown]
  - Culture urine positive [Unknown]
  - Orthosis user [Unknown]
  - Encephalitis autoimmune [Recovered/Resolved with Sequelae]
  - Obsessive-compulsive disorder [Unknown]
  - Vitamin B12 deficiency [Unknown]
  - Autism spectrum disorder [Unknown]
  - Orthodontic procedure [Unknown]
  - Vomiting [Unknown]
  - Blood immunoglobulin G increased [Unknown]
  - Hyperphagia [Unknown]
  - Serum ferritin decreased [Unknown]
  - Glucose tolerance impaired [Unknown]
  - Knee deformity [Unknown]
  - Thyroxine free decreased [Unknown]
  - Mite allergy [Unknown]
  - Encephalitis [Unknown]
  - Dermatitis [Unknown]
  - Seasonal allergy [Unknown]
  - Rebound effect [Unknown]
  - Foreign body in eye [Unknown]
  - Hospitalisation [Unknown]
  - Hospitalisation [Unknown]
  - Hospitalisation [Unknown]
  - Encephalitis autoimmune [Recovered/Resolved with Sequelae]

NARRATIVE: CASE EVENT DATE: 20190101
